FAERS Safety Report 8192216-6 (Version None)
Quarter: 2012Q1

REPORT INFORMATION
  Report Type: 
  Country: None (occurrence: None)
  Receive Date: 20120307
  Receipt Date: 20120302
  Transmission Date: 20120608
  Serious: Yes (Other)
  Sender: FDA-Public Use
  Company Number: US-PFIZER INC-2012030917

PATIENT
  Age: 51 Year
  Sex: Female
  Weight: 61.224 kg

DRUGS (3)
  1. ALPRAZOLAM [Suspect]
     Indication: SLEEP DISORDER
     Dosage: UNKNOWN DOSE AS NEEDED
  2. ALPRAZOLAM [Suspect]
     Dosage: TWO TABLETS AT AN UNKNOWN FREQUENCY
     Dates: start: 20120101
  3. ALPRAZOLAM [Suspect]
     Dosage: HALF A TABLET

REACTIONS (2)
  - DRUG INEFFECTIVE [None]
  - DIABETES MELLITUS [None]
